FAERS Safety Report 13758138 (Version 3)
Quarter: 2017Q4

REPORT INFORMATION
  Report Type: Spontaneous
  Country: US (occurrence: US)
  Receive Date: 20170717
  Receipt Date: 20171010
  Transmission Date: 20180320
  Serious: No
  Sender: FDA-Public Use
  Company Number: US-GLAXOSMITHKLINE-US2017109001

PATIENT
  Age: 77 Year
  Sex: Female

DRUGS (9)
  1. PANTOPRAZOLE [Concomitant]
     Active Substance: PANTOPRAZOLE
  2. FLECAINIDE [Concomitant]
     Active Substance: FLECAINIDE
  3. WARFARIN [Concomitant]
     Active Substance: WARFARIN
  4. METOPROLOL. [Concomitant]
     Active Substance: METOPROLOL
  5. GLUCOSAMINE CHONDROITIN [Concomitant]
     Active Substance: CHONDROITIN SULFATE (BOVINE)\GLUCOSAMINE HYDROCHLORIDE
  6. IRON [Concomitant]
     Active Substance: IRON
  7. ADVAIR DISKUS [Suspect]
     Active Substance: FLUTICASONE PROPIONATE\SALMETEROL XINAFOATE
     Indication: ASTHMA
     Dosage: 1 PUFF(S), BID
     Route: 055
  8. ATORVASTATIN [Concomitant]
     Active Substance: ATORVASTATIN
  9. CALCIUM [Concomitant]
     Active Substance: CALCIUM

REACTIONS (3)
  - Tongue discomfort [Recovering/Resolving]
  - Drug dose omission [Unknown]
  - Product quality issue [Unknown]

NARRATIVE: CASE EVENT DATE: 20170709
